FAERS Safety Report 23490779 (Version 1)
Quarter: 2024Q1

REPORT INFORMATION
  Report Type: Spontaneous
  Country: US (occurrence: None)
  Receive Date: 20240206
  Receipt Date: 20240206
  Transmission Date: 20240409
  Serious: No
  Sender: FDA-Public Use
  Company Number: US-ROCHE-3390755

PATIENT
  Age: 16 Year
  Sex: Male
  Weight: 59.9 kg

DRUGS (5)
  1. NUTROPIN AQ [Suspect]
     Active Substance: SOMATROPIN
     Indication: Short stature
     Dosage: NUTROPIN AQ NUSPIN 10 MG/2 ML
     Route: 058
     Dates: start: 20230313
  2. NUTROPIN AQ [Suspect]
     Active Substance: SOMATROPIN
  3. NUTROPIN AQ [Suspect]
     Active Substance: SOMATROPIN
     Indication: Growth retardation
  4. NUTROPIN AQ [Suspect]
     Active Substance: SOMATROPIN
  5. LIDOCAINE [Concomitant]
     Active Substance: LIDOCAINE
     Route: 061

REACTIONS (1)
  - Injection site pain [Not Recovered/Not Resolved]
